FAERS Safety Report 4599621-5 (Version None)
Quarter: 2005Q1

REPORT INFORMATION
  Report Type: 
  Country: None (occurrence: None)
  Receive Date: 20050127
  Receipt Date: 20041019
  Transmission Date: 20050727
  Serious: No
  Sender: FDA-Public Use
  Company Number: USA041081630

PATIENT
  Age: 13 Year
  Sex: Male
  Weight: 68 kg

DRUGS (1)
  1. STRATTERA [Suspect]
     Indication: ATTENTION DEFICIT/HYPERACTIVITY DISORDER
     Dosage: 100 MG
     Dates: start: 20030301

REACTIONS (8)
  - ANXIETY [None]
  - ATTENTION DEFICIT/HYPERACTIVITY DISORDER [None]
  - DECREASED APPETITE [None]
  - DRUG INEFFECTIVE [None]
  - HYPERPHAGIA [None]
  - MYDRIASIS [None]
  - PRESCRIBED OVERDOSE [None]
  - WEIGHT DECREASED [None]
